FAERS Safety Report 5270284-9 (Version None)
Quarter: 2007Q1

REPORT INFORMATION
  Report Type: 
  Country: None (occurrence: None)
  Receive Date: 20070320
  Receipt Date: 20070308
  Transmission Date: 20070707
  Serious: Yes (Death, Other)
  Sender: FDA-Public Use
  Company Number: US-PFIZER INC-2004071970

PATIENT
  Sex: Female
  Weight: 90.7 kg

DRUGS (12)
  1. NEURONTIN [Suspect]
     Indication: MIGRAINE
     Route: 048
     Dates: start: 19950101, end: 20020101
  2. NEURONTIN [Suspect]
     Indication: DYSKINESIA
  3. NEURONTIN [Suspect]
     Indication: FIBROMYALGIA
  4. NORTRIPTYLINE HCL [Concomitant]
     Route: 048
  5. NEXIUM [Concomitant]
     Route: 048
  6. ALLEGRA [Concomitant]
     Route: 048
  7. AMITRIPTYLINE HCL [Concomitant]
     Route: 048
  8. MULTI-VITAMINS [Concomitant]
     Route: 048
  9. ASCORBIC ACID [Concomitant]
     Route: 048
  10. PROPOXYPHENE HYDROCHLORIDE [Concomitant]
  11. CLONAZEPAM [Concomitant]
  12. ALL OTHER THERAPEUTIC PRODUCTS [Concomitant]

REACTIONS (14)
  - ANXIETY [None]
  - BRAIN DEATH [None]
  - BRAIN HERNIATION [None]
  - BRAIN OEDEMA [None]
  - CEREBRAL HAEMORRHAGE [None]
  - COMPLETED SUICIDE [None]
  - DEPRESSION [None]
  - DRUG INEFFECTIVE [None]
  - INJURY [None]
  - PAIN [None]
  - PNEUMOCEPHALUS [None]
  - SKULL FRACTURE [None]
  - SUBARACHNOID HAEMORRHAGE [None]
  - SUICIDAL IDEATION [None]
